FAERS Safety Report 5815235-0 (Version None)
Quarter: 2008Q3

REPORT INFORMATION
  Report Type: 
  Country: None (occurrence: None)
  Receive Date: 20080718
  Receipt Date: 20080716
  Transmission Date: 20090109
  Serious: Yes (Death)
  Sender: FDA-Public Use
  Company Number: US-BOEHRINGER INGELHEIM GMBH, GERMANY-2008-BP-11188RO

PATIENT
  Sex: Female

DRUGS (4)
  1. METHADONE HCL [Suspect]
  2. HYDRO S [Concomitant]
  3. VALIUM [Concomitant]
  4. CYMBALTA [Concomitant]

REACTIONS (1)
  - ACCIDENTAL OVERDOSE [None]
